FAERS Safety Report 17751705 (Version 1)
Quarter: 2020Q2

REPORT INFORMATION
  Report Type: Spontaneous
  Country: CN (occurrence: CN)
  Receive Date: 20200506
  Receipt Date: 20200506
  Transmission Date: 20200714
  Serious: Yes (Hospitalization, Other)
  Sender: FDA-Public Use
  Company Number: CN-009507513-2004CHN008627

PATIENT
  Age: 75 Year
  Sex: Female
  Weight: 74.6 kg

DRUGS (4)
  1. INVANZ [Suspect]
     Active Substance: ERTAPENEM SODIUM
     Indication: SEPTIC SHOCK
     Dosage: 1G, QD
     Route: 041
     Dates: start: 20200210, end: 20200212
  2. PIPERACILLIN AND TAZOBACTAM [Suspect]
     Active Substance: PIPERACILLIN SODIUM\TAZOBACTAM SODIUM
     Indication: SEPTIC SHOCK
     Dosage: 3.375 G
     Route: 041
     Dates: start: 20200206, end: 20200210
  3. SODIUM CHLORIDE. [Concomitant]
     Active Substance: SODIUM CHLORIDE
     Dosage: 100 MILLILITER
     Route: 041
     Dates: start: 20200210, end: 20200212
  4. DEXTROSE (+) SODIUM CHLORIDE [Concomitant]
     Dosage: 100 MILLILITER, Q6H
     Route: 041
     Dates: start: 20200206, end: 20200210

REACTIONS (2)
  - Neutropenia [Recovering/Resolving]
  - White blood cell count decreased [Recovering/Resolving]

NARRATIVE: CASE EVENT DATE: 20200212
